FAERS Safety Report 6596075-4 (Version None)
Quarter: 2010Q1

REPORT INFORMATION
  Report Type: 
  Country: None (occurrence: None)
  Receive Date: 20100219
  Receipt Date: 20100219
  Transmission Date: 20100710
  Serious: Yes (Hospitalization)
  Sender: FDA-Public Use
  Company Number: None

PATIENT
  Age: 62 Year
  Sex: Male
  Weight: 98.88 kg

DRUGS (1)
  1. PROCHLORPERAZINE [Suspect]
     Indication: NAUSEA
     Dosage: 10 MG ONCE PO
     Route: 048
     Dates: start: 20091002, end: 20091002

REACTIONS (5)
  - BLOOD PRESSURE DECREASED [None]
  - OCULOGYRIC CRISIS [None]
  - RETCHING [None]
  - TINNITUS [None]
  - VISION BLURRED [None]
